FAERS Safety Report 19857402 (Version 1)
Quarter: 2021Q3

REPORT INFORMATION
  Report Type: Spontaneous
  Country: FR (occurrence: FR)
  Receive Date: 20210920
  Receipt Date: 20210920
  Transmission Date: 20211014
  Serious: Yes (Life-Threatening, Other)
  Sender: FDA-Public Use
  Company Number: FR-MYLANLABS-2021M1062938

PATIENT
  Age: 67 Year
  Sex: Male
  Weight: 77.3 kg

DRUGS (11)
  1. ASPARAGINASE [Concomitant]
     Active Substance: ASPARAGINASE
  2. GEMCITABINE. [Concomitant]
     Active Substance: GEMCITABINE
  3. OGASTORO [Interacting]
     Active Substance: LANSOPRAZOLE
     Indication: PRODUCT USED FOR UNKNOWN INDICATION
     Dosage: 15 MILLIGRAM, QD
     Route: 048
     Dates: start: 20210407, end: 20210408
  4. TAZOCILLINE [Interacting]
     Active Substance: PIPERACILLIN SODIUM\TAZOBACTAM SODIUM
     Indication: PYREXIA
     Dosage: 1500 MILLIGRAM, QD
     Route: 041
     Dates: start: 20210402, end: 20210408
  5. OFLOXACINE [Concomitant]
     Active Substance: OFLOXACIN
  6. APREPITANT. [Concomitant]
     Active Substance: APREPITANT
  7. METHOTREXATE MYLAN [Suspect]
     Active Substance: METHOTREXATE SODIUM
     Indication: ANGIOCENTRIC LYMPHOMA
     Dosage: 5910 MILLIGRAM, QD
     Route: 041
     Dates: start: 20210407, end: 20210407
  8. AZOPT [Concomitant]
     Active Substance: BRINZOLAMIDE
  9. DEXAMETHASONE. [Concomitant]
     Active Substance: DEXAMETHASONE
  10. CETIRIZINE [Concomitant]
     Active Substance: CETIRIZINE HYDROCHLORIDE
  11. NYSTATINE [Concomitant]
     Active Substance: NYSTATIN

REACTIONS (3)
  - Bone marrow failure [Not Recovered/Not Resolved]
  - Drug interaction [Not Recovered/Not Resolved]
  - Acute kidney injury [Not Recovered/Not Resolved]

NARRATIVE: CASE EVENT DATE: 20210408
